FAERS Safety Report 14291612 (Version 4)
Quarter: 2018Q1

REPORT INFORMATION
  Report Type: Spontaneous
  Country: US (occurrence: US)
  Receive Date: 20171215
  Receipt Date: 20180313
  Transmission Date: 20180509
  Serious: Yes (Other)
  Sender: FDA-Public Use
  Company Number: US-PFIZER INC-2017533113

PATIENT
  Age: 47 Year
  Sex: Male
  Weight: 82.55 kg

DRUGS (3)
  1. NEURONTIN [Suspect]
     Active Substance: GABAPENTIN
     Indication: GENERALISED TONIC-CLONIC SEIZURE
     Dosage: 600 MG, 3X/DAY
     Route: 048
     Dates: start: 2000
  2. TEGRETOL XR [Concomitant]
     Active Substance: CARBAMAZEPINE
     Dosage: 200 MG, 1X/DAY
  3. TEGRETOL XR [Concomitant]
     Active Substance: CARBAMAZEPINE
     Dosage: 400 MG, 3X/DAY

REACTIONS (4)
  - Radius fracture [Recovered/Resolved]
  - Spinal osteoarthritis [Unknown]
  - Fall [Recovered/Resolved]
  - Limb discomfort [Unknown]

NARRATIVE: CASE EVENT DATE: 20160317
